FAERS Safety Report 16465083 (Version 1)
Quarter: 2019Q2

REPORT INFORMATION
  Report Type: Other
  Country: NA (occurrence: NA)
  Receive Date: 20190621
  Receipt Date: 20190621
  Transmission Date: 20190711
  Serious: Yes (Life-Threatening, Hospitalization)
  Sender: FDA-Public Use
  Company Number: NA-NOSTRUM LABORATORIES, INC.-2069471

PATIENT
  Age: 16 Year
  Sex: Male

DRUGS (1)
  1. MORPHINE SULFATE. [Suspect]
     Active Substance: MORPHINE SULFATE
     Indication: PAIN

REACTIONS (4)
  - Hypovolaemic shock [Recovered/Resolved]
  - Hyperglycaemia [Unknown]
  - Acute respiratory distress syndrome [Recovered/Resolved]
  - Anaphylactic reaction [Recovered/Resolved]
